FAERS Safety Report 7464907-3 (Version None)
Quarter: 2011Q2

REPORT INFORMATION
  Report Type: 
  Country: None (occurrence: None)
  Receive Date: 20110509
  Receipt Date: 20110324
  Transmission Date: 20111010
  Serious: Yes (Other)
  Sender: FDA-Public Use
  Company Number: US-BAYER-201038364NA

PATIENT
  Age: 43 Year
  Sex: Female
  Weight: 126.98 kg

DRUGS (10)
  1. GLUCOPHAGE [Concomitant]
     Dosage: 1000 MG, BID
  2. PERI-COLACE [Concomitant]
  3. YAZ [Suspect]
     Indication: ACNE
     Dosage: UNK
  4. YAZ [Suspect]
     Indication: MENORRHAGIA
  5. YAZ [Suspect]
     Indication: CONTRACEPTION
  6. YASMIN [Suspect]
     Indication: MENORRHAGIA
  7. SYNTHROID [Concomitant]
     Dosage: 0.1 MG, QD
  8. YASMIN [Suspect]
     Indication: CONTRACEPTION
  9. FERROUS SULFATE TAB [Concomitant]
     Dosage: 325 MG, BID
  10. YASMIN [Suspect]
     Indication: ACNE
     Dosage: UNK
     Dates: start: 20040101, end: 20050101

REACTIONS (3)
  - GALLBLADDER PAIN [None]
  - INJURY [None]
  - CHOLECYSTITIS CHRONIC [None]
